FAERS Safety Report 8335052-X (Version None)
Quarter: 2012Q2

REPORT INFORMATION
  Report Type: 
  Country: None (occurrence: None)
  Receive Date: 20120503
  Receipt Date: 20100419
  Transmission Date: 20120825
  Serious: No
  Sender: FDA-Public Use
  Company Number: US-TEVA-2010002269

PATIENT
  Sex: Female
  Weight: 77.18 kg

DRUGS (9)
  1. NAPRELAN [Concomitant]
     Indication: ANTIINFLAMMATORY THERAPY
     Dosage: 1000 MILLIGRAM;
     Dates: start: 20090101
  2. NATURAL HORMONE [Concomitant]
     Indication: MENOPAUSE
     Dates: start: 20090101
  3. AMITIZA [Concomitant]
     Indication: CONSTIPATION
     Dosage: 48 MICROGRAM;
     Dates: start: 20090101
  4. NUVIGIL [Suspect]
     Dosage: 150 MILLIGRAM;
     Route: 048
     Dates: start: 20100201
  5. NUVIGIL [Suspect]
     Indication: SLEEP APNOEA SYNDROME
     Dosage: 250 MILLIGRAM;
     Route: 048
     Dates: start: 20100101, end: 20100101
  6. LEXAPRO [Concomitant]
     Indication: ANXIETY
     Dosage: 20 MILLIGRAM;
  7. SIMVASTATIN [Concomitant]
     Indication: BLOOD CHOLESTEROL INCREASED
     Dosage: 20 MILLIGRAM;
  8. FEXOFENADINE [Concomitant]
     Indication: SEASONAL ALLERGY
     Dosage: 180 MILLIGRAM;
  9. LEXAPRO [Concomitant]
     Indication: DEPRESSION

REACTIONS (1)
  - INSOMNIA [None]
